FAERS Safety Report 6761377-5 (Version None)
Quarter: 2010Q2

REPORT INFORMATION
  Report Type: 
  Country: None (occurrence: None)
  Receive Date: 20100607
  Receipt Date: 20100526
  Transmission Date: 20101027
  Serious: Yes (Hospitalization)
  Sender: FDA-Public Use
  Company Number: DE-1181366

PATIENT
  Age: 77 Year
  Sex: Male

DRUGS (1)
  1. FLUORESCEIN SODIUM [Suspect]
     Indication: MACULAR DEGENERATION
     Dosage: 20 ML IV ONCE, INTRAVENOUS BOLUS
     Route: 040
     Dates: start: 20090807, end: 20090807

REACTIONS (6)
  - ANAPHYLACTIC REACTION [None]
  - ERYTHEMA [None]
  - HYPERTENSIVE CRISIS [None]
  - HYPOAESTHESIA [None]
  - NAUSEA [None]
  - UNRESPONSIVE TO STIMULI [None]
